FAERS Safety Report 10160760 (Version 2)
Quarter: 2014Q2

REPORT INFORMATION
  Report Type: Spontaneous
  Country: US (occurrence: US)
  Receive Date: 20140508
  Receipt Date: 20140516
  Transmission Date: 20141212
  Serious: Yes (Hospitalization)
  Sender: FDA-Public Use
  Company Number: US-TEVA-480138USA

PATIENT
  Sex: Male
  Weight: 106.69 kg

DRUGS (11)
  1. ACTIQ [Suspect]
     Indication: BACK PAIN
  2. ACTIQ [Suspect]
     Indication: HYPOAESTHESIA
  3. FENTANYL CITRATE [Suspect]
  4. NEURONTIN [Concomitant]
     Indication: BACK PAIN
     Dosage: 3200 MILLIGRAM DAILY;
  5. SENOKOT [Concomitant]
     Indication: PRODUCT USED FOR UNKNOWN INDICATION
     Dosage: NOT PROVIDED
  6. ACIPHEX [Concomitant]
     Indication: BACK PAIN
     Dosage: 40 MILLIGRAM DAILY;
  7. NABUMETONE [Concomitant]
     Indication: BACK PAIN
     Dosage: 1500 MILLIGRAM DAILY;
  8. OXYCONTIN [Concomitant]
     Indication: BACK PAIN
     Dosage: 180 MILLIGRAM DAILY;
  9. AMITRIPTYLINE [Concomitant]
     Indication: BACK PAIN
     Dosage: 10 AND 20 MG, FREQUENCY: 35-40 MG PER DAY (10 MG TID)
  10. FLECTOR [Concomitant]
     Indication: BACK PAIN
     Dosage: 2 PATCHES BID
     Route: 062
  11. ANDROGEL [Concomitant]
     Indication: PRODUCT USED FOR UNKNOWN INDICATION
     Dosage: 1.6 MILLIGRAM DAILY;

REACTIONS (3)
  - Pain [Recovered/Resolved]
  - Drug ineffective [Recovered/Resolved]
  - Off label use [Unknown]
